FAERS Safety Report 5883876-0 (Version None)
Quarter: 2008Q3

REPORT INFORMATION
  Report Type: 
  Country: None (occurrence: None)
  Receive Date: 20080915
  Receipt Date: 20080904
  Transmission Date: 20090109
  Serious: Yes (Hospitalization)
  Sender: FDA-Public Use
  Company Number: A0747383A

PATIENT
  Age: 69 Year
  Sex: Female
  Weight: 86.4 kg

DRUGS (3)
  1. AVANDIA [Suspect]
     Dosage: 4MG TWICE PER DAY
     Route: 065
     Dates: start: 20020826, end: 20030726
  2. AVANDAMET [Suspect]
     Dosage: 500MG TWICE PER DAY
     Route: 065
     Dates: start: 20030726, end: 20070703
  3. GLUCOPHAGE [Concomitant]
     Dates: start: 20010101, end: 20080101

REACTIONS (6)
  - CHEST PAIN [None]
  - DIZZINESS [None]
  - DYSPNOEA [None]
  - FLUID RETENTION [None]
  - MYOCARDIAL INFARCTION [None]
  - OEDEMA PERIPHERAL [None]
